FAERS Safety Report 25991483 (Version 1)
Quarter: 2025Q4

REPORT INFORMATION
  Report Type: Spontaneous
  Country: US (occurrence: US)
  Receive Date: 20251103
  Receipt Date: 20251103
  Transmission Date: 20260117
  Serious: No
  Sender: SANOFI AVENTIS
  Company Number: US-SA-2025SA317200

PATIENT
  Sex: Female

DRUGS (13)
  1. DUPIXENT [Suspect]
     Active Substance: DUPILUMAB
     Indication: Drug therapy
     Dosage: 300 MG, QOW
     Route: 058
  2. CLOBAZAM [Concomitant]
     Active Substance: CLOBAZAM
  3. BUPROPION [Concomitant]
     Active Substance: BUPROPION
  4. BACLOFEN [Concomitant]
     Active Substance: BACLOFEN
  5. ATORVASTATIN [Concomitant]
     Active Substance: ATORVASTATIN
  6. ALBUTEROL [Concomitant]
     Active Substance: ALBUTEROL
  7. ADVAIR HFA [Concomitant]
     Active Substance: FLUTICASONE PROPIONATE\SALMETEROL XINAFOATE
  8. ZOLPIDEM [Concomitant]
     Active Substance: ZOLPIDEM TARTRATE
  9. VOLTAREN [Concomitant]
     Active Substance: DICLOFENAC SODIUM
  10. PREGABALIN [Concomitant]
     Active Substance: PREGABALIN
  11. PRAZOSIN [Concomitant]
     Active Substance: PRAZOSIN
  12. OZEMPIC [Concomitant]
     Active Substance: SEMAGLUTIDE
  13. GLIPIZIDE [Concomitant]
     Active Substance: GLIPIZIDE

REACTIONS (4)
  - Joint stiffness [Unknown]
  - Headache [Unknown]
  - Hypertension [Unknown]
  - Extra dose administered [Unknown]
